FAERS Safety Report 4557792-0 (Version None)
Quarter: 2005Q1

REPORT INFORMATION
  Report Type: 
  Country: None (occurrence: None)
  Receive Date: 20050121
  Receipt Date: 20050110
  Transmission Date: 20050727
  Serious: Yes (Other)
  Sender: FDA-Public Use
  Company Number: US-JNJFOC-20041005624

PATIENT
  Age: 68 Year
  Sex: Male

DRUGS (4)
  1. REMICADE [Suspect]
     Indication: RHEUMATOID ARTHRITIS
     Route: 042
  2. CHOP [Suspect]
     Indication: CHEMOTHERAPY
  3. PREDNISONE [Concomitant]
  4. METHOTREXATE [Concomitant]

REACTIONS (12)
  - ABDOMINAL PAIN [None]
  - ASTHENIA [None]
  - BRAIN NEOPLASM [None]
  - CHEMOTHERAPY NEUROTOXICITY ATTENUATION [None]
  - CHRONIC OBSTRUCTIVE AIRWAYS DISEASE EXACERBATED [None]
  - FOLLICULITIS [None]
  - GASTRITIS [None]
  - HYPERGLYCAEMIA [None]
  - NEUTROPENIA [None]
  - OESOPHAGITIS [None]
  - SINUSITIS [None]
  - T-CELL LYMPHOMA [None]
